FAERS Safety Report 10060745 (Version 1)
Quarter: 2014Q2

REPORT INFORMATION
  Report Type: Report from Study
  Country: MX (occurrence: MX)
  Receive Date: 20140404
  Receipt Date: 20140404
  Transmission Date: 20141212
  Serious: Yes (Other)
  Sender: FDA-Public Use
  Company Number: PHHY2014MX041108

PATIENT
  Age: 76 Year
  Sex: Female

DRUGS (5)
  1. CO-DIOVAN [Suspect]
     Indication: HYPERTENSION
     Dosage: 0.5 DF(80/12.5MG), DAILY
     Route: 048
     Dates: start: 201106
  2. DIGOXIN [Concomitant]
     Dosage: 1 UKN, DAILY REST SATURDAY AND SUNDAY
  3. HUMALOG MIX [Concomitant]
     Dosage: 6 UKN, UNK
     Dates: start: 201205
  4. DOLO NEUROBION                     /00194601/ [Concomitant]
     Indication: HYPOVITAMINOSIS
     Dosage: 2 UKN, DAILY
     Dates: start: 201206
  5. NOVOTIRAL [Concomitant]
     Dosage: 0.5 UKN, DAILY
     Dates: start: 201206

REACTIONS (6)
  - Blindness [Not Recovered/Not Resolved]
  - Diabetes mellitus [Not Recovered/Not Resolved]
  - Gastritis [Unknown]
  - Cognitive disorder [Not Recovered/Not Resolved]
  - Blood glucose increased [Not Recovered/Not Resolved]
  - Wrong technique in drug usage process [Not Recovered/Not Resolved]
